FAERS Safety Report 6061940-3 (Version None)
Quarter: 2009Q1

REPORT INFORMATION
  Report Type: 
  Country: None (occurrence: None)
  Receive Date: 20090202
  Receipt Date: 20090129
  Transmission Date: 20090719
  Serious: Yes (Death)
  Sender: FDA-Public Use
  Company Number: PHEH2009US01107

PATIENT
  Sex: Female

DRUGS (3)
  1. FEMARA [Suspect]
     Indication: BREAST CANCER
     Dosage: 2.5 MG, QD
     Route: 048
     Dates: start: 20070629, end: 20081213
  2. ALDACTONE [Concomitant]
     Dosage: 25 MG, QD
     Route: 048
  3. LASIX [Concomitant]
     Dosage: 40 MG, BID
     Route: 048

REACTIONS (1)
  - RENAL FAILURE [None]
